FAERS Safety Report 16129418 (Version 1)
Quarter: 2019Q1

REPORT INFORMATION
  Report Type: Spontaneous
  Country: US (occurrence: US)
  Receive Date: 20190328
  Receipt Date: 20190328
  Transmission Date: 20190418
  Serious: Yes (Death, Other)
  Sender: FDA-Public Use
  Company Number: US-INCYTE CORPORATION-2019IN002979

PATIENT

DRUGS (1)
  1. JAKAFI [Suspect]
     Active Substance: RUXOLITINIB
     Indication: MYELOFIBROSIS
     Dosage: 5 MG BID FOR PLATELET COUNT BETWEEN 50 AND 100 X10(9) ADJUST DOSE BASED ON RESPONSE TO MAX 25 MG BID
     Dates: start: 20150411

REACTIONS (1)
  - Death [Fatal]

NARRATIVE: CASE EVENT DATE: 20190320
